FAERS Safety Report 7929403-5 (Version None)
Quarter: 2011Q4

REPORT INFORMATION
  Report Type: 
  Country: None (occurrence: None)
  Receive Date: 20111121
  Receipt Date: 20111116
  Transmission Date: 20120403
  Serious: No
  Sender: FDA-Public Use
  Company Number: US-BIOGENIDEC-2011BI043781

PATIENT
  Age: 31 Year
  Sex: Female

DRUGS (1)
  1. TYSABRI [Suspect]
     Indication: MULTIPLE SCLEROSIS
     Route: 042
     Dates: start: 20110718

REACTIONS (6)
  - HEADACHE [None]
  - ASTHENIA [None]
  - VERTIGO [None]
  - SENSORY DISTURBANCE [None]
  - COGNITIVE DISORDER [None]
  - FATIGUE [None]
